FAERS Safety Report 8990506 (Version 1)
Quarter: 2012Q4

REPORT INFORMATION
  Report Type: 
  Country: CA (occurrence: CA)
  Receive Date: 20121228
  Receipt Date: 20121228
  Transmission Date: 20130627
  Serious: Yes (Other)
  Sender: FDA-Public Use
  Company Number: CA-B.I. PHARMACEUTICALS,INC./RIDGEFIELD-2012-CN-02657CN

PATIENT
  Age: 71 Year
  Sex: Male
  Weight: 74 kg

DRUGS (6)
  1. PRADAX [Suspect]
     Dosage: 220 mg
     Route: 048
  2. ALLOPURINOL [Concomitant]
  3. BISOPROLOL [Concomitant]
  4. HYDROCHLOROTHIAZIDE [Concomitant]
  5. METFORMIN [Concomitant]
  6. RAMIPRIL [Concomitant]

REACTIONS (5)
  - Chest pain [Recovered/Resolved]
  - Faeces discoloured [Recovered/Resolved]
  - Flatulence [Recovered/Resolved]
  - Throat tightness [Recovered/Resolved]
  - Dysphagia [Recovered/Resolved]
